FAERS Safety Report 9341428 (Version 2)
Quarter: 2013Q3

REPORT INFORMATION
  Report Type: Spontaneous
  Country: US (occurrence: US)
  Receive Date: 20130611
  Receipt Date: 20130718
  Transmission Date: 20140515
  Serious: Yes (Hospitalization, Other)
  Sender: FDA-Public Use
  Company Number: US-CELGENEUS-163-21880-13060860

PATIENT
  Age: 55 Year
  Sex: Female

DRUGS (4)
  1. REVLIMID [Suspect]
     Indication: PLASMA CELL MYELOMA
     Dosage: 25 MILLIGRAM
     Route: 048
     Dates: start: 20130413, end: 20130501
  2. ACYCLOVIR [Concomitant]
     Indication: PROPHYLAXIS
     Dosage: 800 MILLIGRAM
     Route: 065
  3. BACTRIM DS [Concomitant]
     Indication: PROPHYLAXIS
     Route: 065
  4. TAPENTADOL [Concomitant]
     Indication: PAIN
     Dosage: 200 MILLIGRAM
     Route: 065

REACTIONS (3)
  - Faecaloma [Recovered/Resolved]
  - Hypokalaemia [Unknown]
  - Hypophosphataemia [Unknown]
